FAERS Safety Report 7533775-3 (Version None)
Quarter: 2011Q2

REPORT INFORMATION
  Report Type: 
  Country: None (occurrence: None)
  Receive Date: 20110608
  Receipt Date: 20110602
  Transmission Date: 20111010
  Serious: Yes (Other)
  Sender: FDA-Public Use
  Company Number: US-UCBSA-034498

PATIENT
  Sex: Male
  Weight: 63 kg

DRUGS (11)
  1. ABILIFY [Concomitant]
     Indication: AFFECTIVE DISORDER
     Route: 048
  2. DEMEROL [Concomitant]
     Indication: PAIN
     Dosage: 100 MG (1-2) PRN
     Route: 048
  3. WELLBUTRIN [Concomitant]
     Indication: DEPRESSION
     Route: 048
  4. VICODIN [Concomitant]
     Indication: PAIN
     Dosage: 5/500 MG PRN
     Route: 048
  5. CIMZIA [Suspect]
     Indication: CROHN'S DISEASE
     Route: 058
     Dates: start: 20081201
  6. LEXAPRO [Concomitant]
     Indication: DEPRESSION
     Route: 048
  7. NEXIUM [Concomitant]
     Indication: GASTROOESOPHAGEAL REFLUX DISEASE
     Route: 048
  8. BENADRYL [Concomitant]
     Indication: SLEEP DISORDER
     Dosage: 25 MG -75 MG DAILY
     Route: 048
  9. FLOMAX [Concomitant]
     Indication: BENIGN PROSTATIC HYPERPLASIA
     Dosage: 0.4-0.8 MG DAILY
     Route: 048
  10. LITHIUM CARBONATE [Concomitant]
     Indication: BIPOLAR DISORDER
     Dosage: 300 MG (1) Q AM AND (2) Q PM
     Route: 048
  11. ENTOCORT EC [Concomitant]
     Indication: DIARRHOEA
     Route: 048

REACTIONS (8)
  - ABDOMINAL PAIN [None]
  - HAEMORRHOIDS [None]
  - ABDOMINAL NEOPLASM [None]
  - GASTROENTERITIS PARACOLON BACILLUS [None]
  - WEIGHT DECREASED [None]
  - COLONIC POLYP [None]
  - CROHN'S DISEASE [None]
  - COLITIS [None]
